FAERS Safety Report 17008526 (Version 1)
Quarter: 2019Q4

REPORT INFORMATION
  Report Type: Spontaneous
  Country: US (occurrence: US)
  Receive Date: 20191108
  Receipt Date: 20191108
  Transmission Date: 20200122
  Serious: Yes (Hospitalization, Other)
  Sender: FDA-Public Use
  Company Number: US-TEVA-2010R0403202

PATIENT
  Age: 40 Year
  Sex: Male

DRUGS (2)
  1. THREE BEERS (ETHANOL) [Suspect]
     Active Substance: ALCOHOL
     Route: 065
  2. VERAPAMIL [Suspect]
     Active Substance: VERAPAMIL HYDROCHLORIDE
     Indication: SUICIDE ATTEMPT
     Dosage: 90 SUSTAINED RELEASE A 240 MG
     Route: 065

REACTIONS (13)
  - Atrioventricular block complete [Unknown]
  - Pyrexia [Recovered/Resolved]
  - Chest pain [Unknown]
  - Suicide attempt [Recovered/Resolved]
  - Vomiting [Unknown]
  - Lethargy [Unknown]
  - Blood pressure systolic decreased [Recovered/Resolved]
  - Tachycardia [Unknown]
  - Pneumonia aspiration [Recovered/Resolved]
  - Toxicity to various agents [Recovered/Resolved]
  - Nausea [Unknown]
  - Hypotension [Unknown]
  - Pulmonary oedema [Unknown]
